FAERS Safety Report 25387296 (Version 1)
Quarter: 2025Q2

REPORT INFORMATION
  Report Type: Spontaneous
  Country: US (occurrence: US)
  Receive Date: 20250602
  Receipt Date: 20250602
  Transmission Date: 20250717
  Serious: Yes (Hospitalization, Other)
  Sender: SANOFI AVENTIS
  Company Number: US-SANOFI-02537883

PATIENT
  Sex: Female

DRUGS (1)
  1. PLAVIX [Suspect]
     Active Substance: CLOPIDOGREL BISULFATE
     Indication: Antiplatelet therapy

REACTIONS (7)
  - Faeces discoloured [Unknown]
  - Thrombosis [Unknown]
  - Internal haemorrhage [Unknown]
  - Dizziness [Unknown]
  - Eye haemorrhage [Unknown]
  - Contusion [Unknown]
  - Blood pressure decreased [Unknown]
